FAERS Safety Report 5366300-6 (Version None)
Quarter: 2007Q2

REPORT INFORMATION
  Report Type: 
  Country: None (occurrence: None)
  Receive Date: 20070619
  Receipt Date: 20070619
  Transmission Date: 20071010
  Serious: Yes (Life-Threatening, Hospitalization)
  Sender: FDA-Public Use
  Company Number: None

PATIENT
  Age: 84 Year
  Sex: Female
  Weight: 54.4316 kg

DRUGS (1)
  1. VYTORIN [Suspect]
     Indication: PROPHYLAXIS
     Dosage: 1 DAY PO
     Route: 048
     Dates: start: 20070410, end: 20070531

REACTIONS (6)
  - ABASIA [None]
  - ARTHRALGIA [None]
  - BALANCE DISORDER [None]
  - BEDRIDDEN [None]
  - MALAISE [None]
  - MOVEMENT DISORDER [None]
